FAERS Safety Report 7591931-2 (Version None)
Quarter: 2011Q3

REPORT INFORMATION
  Report Type: 
  Country: None (occurrence: None)
  Receive Date: 20110701
  Receipt Date: 20110701
  Transmission Date: 20111222
  Serious: Yes (Other)
  Sender: FDA-Public Use
  Company Number: None

PATIENT
  Age: 60 Year
  Sex: Female
  Weight: 113.3993 kg

DRUGS (1)
  1. BUMETANIDE [Suspect]
     Indication: FLUID RETENTION
     Dosage: 2 MG 1 TABLET
     Dates: start: 20110507

REACTIONS (3)
  - MUSCLE SPASMS [None]
  - NAUSEA [None]
  - DIARRHOEA [None]
